FAERS Safety Report 26083465 (Version 1)
Quarter: 2025Q4

REPORT INFORMATION
  Report Type: Spontaneous
  Country: US (occurrence: None)
  Receive Date: 20251124
  Receipt Date: 20251124
  Transmission Date: 20260117
  Serious: No
  Sender: FDA-CTU
  Company Number: None

PATIENT
  Age: 47 Year
  Sex: Male
  Weight: 110.7 kg

DRUGS (6)
  1. BUPRENORPHINE\NALOXONE [Suspect]
     Active Substance: BUPRENORPHINE\NALOXONE
     Indication: Pain
     Dosage: FREQUENCY : 3 TIMES A DAY;?
     Route: 048
  2. BUPRENORPHINE\NALOXONE [Suspect]
     Active Substance: BUPRENORPHINE\NALOXONE
     Indication: Drug use disorder
  3. METOPROLOL [Concomitant]
     Active Substance: METOPROLOL
  4. LISINOPRIL [Concomitant]
     Active Substance: LISINOPRIL
  5. CRESTOR [Concomitant]
     Active Substance: ROSUVASTATIN CALCIUM
  6. IBUPROFEN [Concomitant]
     Active Substance: IBUPROFEN

REACTIONS (6)
  - Blood testosterone decreased [None]
  - Hyperhidrosis [None]
  - Brain fog [None]
  - Loss of personal independence in daily activities [None]
  - Suicidal ideation [None]
  - Anxiety [None]

NARRATIVE: CASE EVENT DATE: 20251121
